FAERS Safety Report 9170109 (Version 2)
Quarter: 2013Q2

REPORT INFORMATION
  Report Type: Spontaneous
  Country: US (occurrence: None)
  Receive Date: 20130307
  Receipt Date: 20130402
  Transmission Date: 20140414
  Serious: Yes (Other)
  Sender: FDA-Public Use
  Company Number: 2013P1002683

PATIENT
  Age: 37 Year
  Sex: Female

DRUGS (2)
  1. INFUMORPH [Suspect]
     Indication: PAIN
     Dates: end: 20130212
  2. INFUMORPH [Suspect]
     Indication: BACK PAIN
     Dates: end: 20130212

REACTIONS (5)
  - Device dislocation [None]
  - Back pain [None]
  - Condition aggravated [None]
  - Mass [None]
  - Procedural site reaction [None]
